FAERS Safety Report 9690559 (Version 1)
Quarter: 2013Q4

REPORT INFORMATION
  Report Type: Spontaneous
  Country: AU (occurrence: AU)
  Receive Date: 20131115
  Receipt Date: 20131115
  Transmission Date: 20140711
  Serious: Yes (Other)
  Sender: FDA-Public Use
  Company Number: PHHY2013AU127521

PATIENT
  Sex: Female

DRUGS (3)
  1. HYDROCHLOROTHIAZIDE [Suspect]
     Indication: HYPERTENSION
  2. SPIRONOLACTONE [Suspect]
     Indication: HYPERTENSION
  3. ALISKIREN [Suspect]
     Indication: HYPERTENSION

REACTIONS (1)
  - Renal tubular necrosis [Recovered/Resolved]
